FAERS Safety Report 5272022-2 (Version None)
Quarter: 2007Q1

REPORT INFORMATION
  Report Type: 
  Country: None (occurrence: None)
  Receive Date: 20061214
  Receipt Date: 20060214
  Transmission Date: 20070707
  Serious: Yes (Other)
  Sender: FDA-Public Use
  Company Number: 2006022120

PATIENT
  Age: 31 Year
  Sex: Female
  Weight: 49.8957 kg

DRUGS (4)
  1. BEXTRA [Suspect]
     Indication: PAIN IN EXTREMITY
     Dosage: 10 MG (10 MG,SINGLE DOSE),ORAL
     Route: 048
     Dates: start: 20060214, end: 20060214
  2. MAXAIR [Suspect]
     Indication: ASTHMA
  3. SINGULAIR ^DIECKMANN^ (MONTELUKAST SODIUM) [Concomitant]
  4. CLARINEX [Concomitant]

REACTIONS (2)
  - DYSPNOEA [None]
  - TREMOR [None]
